FAERS Safety Report 15833641 (Version 2)
Quarter: 2019Q2

REPORT INFORMATION
  Report Type: Report from Study
  Country: US (occurrence: US)
  Receive Date: 20190116
  Receipt Date: 20190612
  Transmission Date: 20190711
  Serious: No
  Sender: FDA-Public Use
  Company Number: PHEH2019US001816

PATIENT
  Sex: Male

DRUGS (1)
  1. COSENTYX [Suspect]
     Active Substance: SECUKINUMAB
     Indication: PSORIASIS
     Route: 058

REACTIONS (5)
  - Drug ineffective [Unknown]
  - Foot fracture [Unknown]
  - Psoriasis [Unknown]
  - Condition aggravated [Unknown]
  - Injection site injury [Unknown]
